FAERS Safety Report 17004955 (Version 1)
Quarter: 2019Q4

REPORT INFORMATION
  Report Type: Spontaneous
  Country: US (occurrence: US)
  Receive Date: 20190926
  Receipt Date: 20190926
  Transmission Date: 20200122
  Serious: Yes (Hospitalization)
  Sender: FDA-Public Use
  Company Number: None

PATIENT
  Age: 44 Year
  Sex: Female

DRUGS (1)
  1. HUMIRA [Suspect]
     Active Substance: ADALIMUMAB
     Indication: MULTIPLE SCLEROSIS
     Route: 058
     Dates: start: 20190214, end: 20190925

REACTIONS (4)
  - Lower limb fracture [None]
  - Road traffic accident [None]
  - Rib fracture [None]
  - Internal haemorrhage [None]

NARRATIVE: CASE EVENT DATE: 20190813
